FAERS Safety Report 4905569-6 (Version None)
Quarter: 2006Q1

REPORT INFORMATION
  Report Type: 
  Country: None (occurrence: None)
  Receive Date: 20060113
  Receipt Date: 20051123
  Transmission Date: 20060701
  Serious: No
  Sender: FDA-Public Use
  Company Number: 2005SP004127

PATIENT
  Sex: Female

DRUGS (1)
  1. LUNESTA [Suspect]
     Dosage: 8 MG;ORAL
     Route: 048

REACTIONS (4)
  - ABDOMINAL PAIN UPPER [None]
  - DRUG INEFFECTIVE [None]
  - HEADACHE [None]
  - INSOMNIA [None]
